FAERS Safety Report 4590952-1 (Version None)
Quarter: 2005Q1

REPORT INFORMATION
  Report Type: 
  Country: None (occurrence: None)
  Receive Date: 20050222
  Receipt Date: 20050222
  Transmission Date: 20050727
  Serious: Yes (Life-Threatening)
  Sender: FDA-Public Use
  Company Number: None

PATIENT
  Sex: Female
  Weight: 62.1428 kg

DRUGS (11)
  1. GEMFIBROZIL [Suspect]
     Indication: HYPERTRIGLYCERIDAEMIA
     Dosage: 600 MG PO BID
     Route: 048
     Dates: start: 20001218
  2. GEMFIBROZIL [Suspect]
     Indication: POLYNEUROPATHY
     Dosage: 600 MG PO BID
     Route: 048
     Dates: start: 20001218
  3. LISINOPRIL [Concomitant]
  4. PREMARIN [Concomitant]
  5. CALCIUM GLUCONATE [Concomitant]
  6. VIOCON FORTE [Concomitant]
  7. NIACIN [Concomitant]
  8. NEURONTIN [Concomitant]
  9. VIOXX [Concomitant]
  10. TYLENOL W/ CODEINE NO. 3 [Concomitant]
  11. MECLIZINE [Concomitant]

REACTIONS (5)
  - BIOPSY LIVER ABNORMAL [None]
  - CHOLESTASIS [None]
  - CRYPTOGENIC CIRRHOSIS [None]
  - LIVER FUNCTION TEST ABNORMAL [None]
  - OEDEMA PERIPHERAL [None]
